FAERS Safety Report 8510480-8 (Version None)
Quarter: 2012Q3

REPORT INFORMATION
  Report Type: 
  Country: None (occurrence: None)
  Receive Date: 20120715
  Receipt Date: 20120601
  Transmission Date: 20120928
  Serious: Yes (Hospitalization)
  Sender: FDA-Public Use
  Company Number: JP-MSD-0710USA02304

PATIENT

DRUGS (21)
  1. REYATAZ [Suspect]
     Indication: HIV INFECTION
     Dosage: DIVIDED DOSE FREQUENCY UNKNOWN
     Route: 048
     Dates: start: 20041221, end: 20050121
  2. EFAVIRENZ [Suspect]
     Dosage: DIVIDED DOSE FREQUENCY UNKNOWN
     Route: 048
     Dates: start: 20051209, end: 20070711
  3. NORVIR [Suspect]
     Dosage: DIVIDED DOSE FREQUENCY UNKNOWN
     Route: 048
     Dates: start: 20110119
  4. COMBIVIR [Suspect]
     Indication: HIV INFECTION
     Dosage: UNK
     Dates: start: 20040514, end: 20050121
  5. COMBIVIR [Suspect]
     Dosage: UNK
     Dates: start: 20050622, end: 20050722
  6. RETROVIR [Suspect]
     Dosage: UNK
     Dates: start: 20050722, end: 20050802
  7. ABACAVIR SULFATE/LAMIVUDINE [Suspect]
     Dates: start: 20110119, end: 20110630
  8. EPIVIR [Suspect]
     Dosage: 300 MG, QD
     Route: 048
     Dates: start: 20050803, end: 20071213
  9. NORVIR [Suspect]
     Indication: HIV INFECTION
     Dosage: DIVIDED DOSE FREQUENCY UNKNOWN
     Route: 048
     Dates: start: 20041221, end: 20050121
  10. DARUNAVIR HYDRATE [Suspect]
     Dosage: UNK
     Dates: start: 20110119
  11. ISENTRESS [Suspect]
     Indication: HIV INFECTION
     Dosage: DIVIDED DOSE FREQUENCY UNKNOWN
     Route: 048
     Dates: start: 20091016, end: 20100930
  12. EFAVIRENZ [Suspect]
     Dosage: DIVIDED DOSE FREQUENCY UNKNOWN
     Route: 048
     Dates: start: 20090717, end: 20091016
  13. VIREAD [Suspect]
     Indication: HIV INFECTION
     Dosage: DIVIDED DOSE FREQUENCY UNKNOWN
     Route: 048
     Dates: start: 20050802, end: 20071213
  14. KALETRA [Suspect]
     Dosage: DIVIDED DOSE FREQUENCY UNKNOWN
     Route: 048
     Dates: start: 20070511, end: 20091016
  15. TRUVADA [Suspect]
     Indication: HIV INFECTION
     Dosage: DIVIDED DOSE FREQUENCY UNKNOWN
     Route: 048
     Dates: start: 20071214, end: 20101001
  16. NORVIR [Suspect]
     Dosage: DIVIDED DOSE FREQUENCY UNKNOWN
     Route: 048
     Dates: start: 20050622, end: 20070510
  17. KALETRA [Suspect]
     Indication: HIV INFECTION
     Dosage: DIVIDED DOSE FREQUENCY UNKNOWN
     Route: 048
     Dates: start: 20040514, end: 20040530
  18. REYATAZ [Suspect]
     Dosage: DIVIDED DOSE FREQUENCY UNKNOWN
     Route: 048
     Dates: start: 20050622, end: 20070510
  19. TRUVADA [Suspect]
     Dosage: DIVIDED DOSE FREQUENCY U
     Route: 048
     Dates: start: 20110701
  20. EFAVIRENZ [Suspect]
     Indication: HIV INFECTION
     Dosage: DIVIDED DOSE FREQUENCY UNKNOWN
     Route: 048
     Dates: start: 20040614, end: 20041221
  21. EPIVIR [Suspect]
     Indication: HIV INFECTION
     Dosage: 150 MG, BID
     Route: 048
     Dates: start: 20050722, end: 20050802

REACTIONS (1)
  - DIABETES MELLITUS [None]
